FAERS Safety Report 19627613 (Version 1)
Quarter: 2021Q3

REPORT INFORMATION
  Report Type: Spontaneous
  Country: CN (occurrence: CN)
  Receive Date: 20210729
  Receipt Date: 20210729
  Transmission Date: 20211014
  Serious: No
  Sender: FDA-Public Use
  Company Number: CN-LUPIN PHARMACEUTICALS INC.-2021-13025

PATIENT
  Age: 46 Year
  Sex: Female

DRUGS (11)
  1. HYDROXYCHLOROQUINE SULFATE. [Suspect]
     Active Substance: HYDROXYCHLOROQUINE SULFATE
     Indication: COVID-19
     Dosage: 0.2 GRAM, BID; TABLETS
     Route: 048
     Dates: start: 2020, end: 2020
  2. PINENE [Concomitant]
     Indication: PRODUCTIVE COUGH
     Dosage: 0.3 GRAM, TID, ENTERIC SOFT CAPSULES; THREE TIMES A DAY
     Route: 048
     Dates: start: 2020
  3. MYCOPHENOLATE MOFETIL. [Concomitant]
     Active Substance: MYCOPHENOLATE MOFETIL
     Indication: PROPHYLAXIS AGAINST TRANSPLANT REJECTION
     Dosage: UNK
     Route: 065
  4. EUCALYPTOL [Concomitant]
     Active Substance: EUCALYPTOL
     Indication: PRODUCTIVE COUGH
     Dosage: UNK
     Route: 065
     Dates: start: 2020
  5. LIMONENE [Concomitant]
     Active Substance: LIMONENE, (+/-)-
     Indication: PRODUCTIVE COUGH
     Dosage: UNK
     Route: 065
     Dates: start: 2020
  6. UMIFENOVIR. [Suspect]
     Active Substance: UMIFENOVIR
     Indication: COVID-19
     Dosage: 0.2 GRAM, TID
     Route: 048
     Dates: start: 2020, end: 2020
  7. ACETYLCYSTEINE. [Concomitant]
     Active Substance: ACETYLCYSTEINE
     Indication: PRODUCTIVE COUGH
     Dosage: 0.6 GRAM, BID, EFFERVESCENT TABLETS
     Route: 048
     Dates: start: 2020
  8. SODIUM CHLORIDE. [Concomitant]
     Active Substance: SODIUM CHLORIDE
     Indication: ANTIBIOTIC THERAPY
     Dosage: 0.4 GRAM, QD, INTRAVENOUS DROP
     Route: 065
     Dates: start: 2020
  9. METHOXYPHENAMINE HYDROCHLORIDE [Concomitant]
     Active Substance: METHOXYPHENAMINE HYDROCHLORIDE
     Indication: COUGH
     Dosage: 2 DOSAGE FORM, BID, EACH CAPSULE CONTAINED METHOXYPHENAMINE HYDROCHLORIDE 12.5 MG, NARCOTINE 7 MG, A
     Route: 048
     Dates: start: 2020, end: 2020
  10. MOXIFLOXACIN HYDROCHLORIDE. [Concomitant]
     Active Substance: MOXIFLOXACIN HYDROCHLORIDE
     Indication: ANTIBIOTIC THERAPY
     Dosage: UNK
     Route: 065
     Dates: start: 2020, end: 2020
  11. TACROLIMUS. [Concomitant]
     Active Substance: TACROLIMUS
     Indication: PROPHYLAXIS AGAINST TRANSPLANT REJECTION
     Dosage: UNK
     Route: 065

REACTIONS (2)
  - Off label use [Unknown]
  - Gastrointestinal disorder [Unknown]

NARRATIVE: CASE EVENT DATE: 2020
